FAERS Safety Report 4390002-6 (Version None)
Quarter: 2004Q2

REPORT INFORMATION
  Report Type: 
  Country: None (occurrence: None)
  Receive Date: 20040628
  Receipt Date: 20040615
  Transmission Date: 20050107
  Serious: Yes (Life-Threatening, Hospitalization)
  Sender: FDA-Public Use
  Company Number: 2004040217

PATIENT
  Age: 55 Year
  Sex: Female
  Weight: 56.6996 kg

DRUGS (4)
  1. ZOLOFT [Suspect]
     Indication: MIGRAINE
     Dosage: 100 MG (100 MG, 1 IN 1 D), ORAL
     Route: 048
     Dates: start: 19980601, end: 20040424
  2. RIZATRIPTAN BENZOATE (RIZATRIPTAN BENZOATE) [Suspect]
     Indication: MIGRAINE
     Dosage: SUBLINGUAL
     Route: 060
     Dates: start: 20020601, end: 20040424
  3. VALSARTAN (VALSARTAN) [Concomitant]
  4. ESTROGENS (ESTROGENS) [Concomitant]

REACTIONS (16)
  - AGITATION [None]
  - APHASIA [None]
  - AURA [None]
  - CHILLS [None]
  - DRUG INEFFECTIVE [None]
  - DRUG INTERACTION [None]
  - HEADACHE [None]
  - HYPERHIDROSIS [None]
  - HYPERTENSION [None]
  - HYPERTHERMIA [None]
  - LOSS OF CONSCIOUSNESS [None]
  - MYOCLONUS [None]
  - SEROTONIN SYNDROME [None]
  - TREMOR [None]
  - VENTRICULAR TACHYCARDIA [None]
  - VOMITING [None]
